FAERS Safety Report 8031473-3 (Version None)
Quarter: 2011Q4

REPORT INFORMATION
  Report Type: 
  Country: None (occurrence: None)
  Receive Date: 20111202
  Receipt Date: 20091015
  Transmission Date: 20120403
  Serious: Yes (Hospitalization, Disabling)
  Sender: FDA-Public Use
  Company Number: 2009-195761-NL

PATIENT
  Age: 24 Year
  Sex: Female
  Weight: 90.7194 kg

DRUGS (4)
  1. DETROL [Concomitant]
  2. NUVARING [Suspect]
     Indication: MENSTRUATION IRREGULAR
     Dosage: 1 DF;
     Dates: start: 20070301, end: 20070501
  3. NUVARING [Suspect]
     Indication: DYSMENORRHOEA
     Dosage: 1 DF;
     Dates: start: 20070301, end: 20070501
  4. VALIUM [Concomitant]

REACTIONS (1)
  - PULMONARY EMBOLISM [None]
